FAERS Safety Report 24658996 (Version 1)
Quarter: 2024Q4

REPORT INFORMATION
  Report Type: Spontaneous
  Country: US (occurrence: None)
  Receive Date: 20241122
  Receipt Date: 20241122
  Transmission Date: 20250115
  Serious: Yes (Other)
  Sender: Public
  Company Number: None

PATIENT
  Age: 41 Year
  Sex: Female
  Weight: 80.3 kg

DRUGS (8)
  1. PEXIDARTINIB [Suspect]
     Active Substance: PEXIDARTINIB
     Indication: Giant cell tumour of tendon sheath
     Dosage: FREQUENCY : TWICE A DAY;?
     Route: 048
     Dates: start: 20240920
  2. ATOGEPANT [Concomitant]
     Active Substance: ATOGEPANT
  3. HYDRALAZINE [Concomitant]
     Active Substance: HYDRALAZINE HYDROCHLORIDE
  4. HYDROCHLOROTHIAZIDE [Concomitant]
     Active Substance: HYDROCHLOROTHIAZIDE
  5. NIFEDIPINE [Concomitant]
     Active Substance: NIFEDIPINE
  6. ONDANSETRON [Concomitant]
     Active Substance: ONDANSETRON
  7. PROCHLORPERAZINE [Concomitant]
     Active Substance: PROCHLORPERAZINE
  8. UBROGEPANT [Concomitant]
     Active Substance: UBROGEPANT

REACTIONS (1)
  - Oligomenorrhoea [None]

NARRATIVE: CASE EVENT DATE: 20241001
